FAERS Safety Report 9351490 (Version 2)
Quarter: 2013Q2

REPORT INFORMATION
  Report Type: Spontaneous
  Country: FR (occurrence: FR)
  Receive Date: 20130617
  Receipt Date: 20130621
  Transmission Date: 20140414
  Serious: Yes (Hospitalization, Other)
  Sender: FDA-Public Use
  Company Number: FR-009507513-1306FRA003460

PATIENT
  Age: 91 Year
  Sex: Female

DRUGS (9)
  1. AERIUS [Suspect]
     Dosage: 5 MG, QD
     Route: 048
     Dates: start: 20130225, end: 20130302
  2. BACTRIM FORTE [Suspect]
     Dosage: 1 DF, QD
     Route: 048
     Dates: start: 20130225, end: 20130304
  3. EUPANTOL [Suspect]
     Dosage: 40 MG, BID
     Route: 048
     Dates: start: 20130226, end: 20130305
  4. SELOKEN [Concomitant]
     Dosage: 1 DF, QD
     Route: 048
  5. KARDEGIC [Concomitant]
     Dosage: 75 MG, QD
     Route: 048
  6. TEMESTA [Concomitant]
     Dosage: 0.5 MG, QD
     Route: 048
  7. SEROPLEX [Concomitant]
     Dosage: 5 MG, QD
     Route: 048
  8. LASILIX [Concomitant]
     Dosage: 60 MG, QD
     Route: 048
  9. HEMIGOXINE NATIVELLE [Concomitant]
     Dosage: 0.5 DF, QOD
     Route: 048
     Dates: end: 20130227

REACTIONS (1)
  - Renal failure acute [Recovered/Resolved]
